FAERS Safety Report 15992601 (Version 2)
Quarter: 2019Q1

REPORT INFORMATION
  Report Type: Report from Study
  Country: US (occurrence: US)
  Receive Date: 20190221
  Receipt Date: 20190227
  Transmission Date: 20190418
  Serious: Yes (Hospitalization)
  Sender: FDA-Public Use
  Company Number: US-ACTELION-A-NJ2018-168868

PATIENT
  Sex: Female
  Weight: 129.25 kg

DRUGS (4)
  1. LETAIRIS [Concomitant]
     Active Substance: AMBRISENTAN
  2. UPTRAVI [Suspect]
     Active Substance: SELEXIPAG
     Indication: PULMONARY HYPERTENSION
     Dosage: 800 MCG, BID
     Route: 048
     Dates: end: 20190209
  3. UPTRAVI [Suspect]
     Active Substance: SELEXIPAG
     Dosage: UNK
     Route: 048
  4. UPTRAVI [Suspect]
     Active Substance: SELEXIPAG
     Dosage: 1000 MCG, BID
     Route: 048

REACTIONS (19)
  - Pain [Unknown]
  - Gastrooesophageal reflux disease [Unknown]
  - Insomnia [Unknown]
  - Diarrhoea [Unknown]
  - Right ventricular systolic pressure increased [Unknown]
  - Increased appetite [Unknown]
  - Pain in extremity [Unknown]
  - Therapy change [Unknown]
  - Throat irritation [Unknown]
  - Pulmonary arterial hypertension [Unknown]
  - Headache [Unknown]
  - Nausea [Unknown]
  - Disease progression [Unknown]
  - Hypoxia [Unknown]
  - Therapy non-responder [Unknown]
  - Fluid overload [Unknown]
  - Visual impairment [Unknown]
  - Dyspepsia [Unknown]
  - Dyspnoea [Unknown]
